FAERS Safety Report 25674391 (Version 1)
Quarter: 2025Q3

REPORT INFORMATION
  Report Type: Report from Study
  Country: US (occurrence: US)
  Receive Date: 20250813
  Receipt Date: 20250813
  Transmission Date: 20251020
  Serious: No
  Sender: SUNOVION
  Company Number: US-SUMITOMO PHARMA SWITZERLAND GMBH-2025SPA010115

PATIENT
  Age: 76 Year
  Sex: Male

DRUGS (11)
  1. ORGOVYX [Suspect]
     Active Substance: RELUGOLIX
     Indication: Prostate cancer
     Route: 048
  2. ORGOVYX [Suspect]
     Active Substance: RELUGOLIX
     Route: 048
  3. ABIRATERONE [Concomitant]
     Active Substance: ABIRATERONE
  4. FLONASE [Concomitant]
     Active Substance: FLUTICASONE PROPIONATE
  5. ATORVASTATIN [Concomitant]
     Active Substance: ATORVASTATIN
  6. FAMOTIDINE [Concomitant]
     Active Substance: FAMOTIDINE
  7. FINASTERIDE [Concomitant]
     Active Substance: FINASTERIDE
  8. MINERALS\VITAMINS [Concomitant]
     Active Substance: MINERALS\VITAMINS
  9. PREDNISONE [Concomitant]
     Active Substance: PREDNISONE
  10. DOCUSATE SODIUM [Concomitant]
     Active Substance: DOCUSATE SODIUM
  11. TAMSULOSIN [Concomitant]
     Active Substance: TAMSULOSIN

REACTIONS (2)
  - Cold sweat [Unknown]
  - Hot flush [Unknown]
